FAERS Safety Report 18740191 (Version 1)
Quarter: 2021Q1

REPORT INFORMATION
  Report Type: Spontaneous
  Country: US (occurrence: US)
  Receive Date: 20210114
  Receipt Date: 20210114
  Transmission Date: 20210419
  Serious: Yes (Hospitalization, Other)
  Sender: FDA-Public Use
  Company Number: US-PFIZER INC-2020196921

PATIENT
  Age: 46 Year
  Sex: Male

DRUGS (1)
  1. RAPAMUNE [Suspect]
     Active Substance: SIROLIMUS
     Dosage: 2 MG, DAILY (TAKE 1 TABLET DAILY)
     Route: 048

REACTIONS (4)
  - Cerebral palsy [Unknown]
  - COVID-19 [Unknown]
  - Product prescribing error [Unknown]
  - Pain in extremity [Unknown]
